FAERS Safety Report 12981466 (Version 1)
Quarter: 2016Q4

REPORT INFORMATION
  Report Type: Report from Study
  Country: CA (occurrence: CA)
  Receive Date: 20161129
  Receipt Date: 20161129
  Transmission Date: 20170207
  Serious: Yes (Other)
  Sender: FDA-Public Use
  Company Number: CA-ROCHE-1860337

PATIENT
  Sex: Female

DRUGS (23)
  1. RITUXAN [Suspect]
     Active Substance: RITUXIMAB
     Route: 042
     Dates: start: 20140206
  2. AMITRIPTYLINE [Concomitant]
     Active Substance: AMITRIPTYLINE
  3. ACETAMINOPHEN. [Concomitant]
     Active Substance: ACETAMINOPHEN
     Route: 048
  4. RITUXAN [Suspect]
     Active Substance: RITUXIMAB
     Route: 042
     Dates: start: 20140818
  5. METHYLPREDNISOLONE. [Suspect]
     Active Substance: METHYLPREDNISOLONE
     Route: 042
  6. REACTINE (CANADA) [Suspect]
     Active Substance: CETIRIZINE HYDROCHLORIDE
     Indication: NASOPHARYNGITIS
     Route: 065
  7. VITAMIN B12 [Concomitant]
     Active Substance: CYANOCOBALAMIN
  8. RABEPRAZOLE [Concomitant]
     Active Substance: RABEPRAZOLE
  9. DOMPERIDONE [Concomitant]
     Active Substance: DOMPERIDONE
  10. RITUXAN [Suspect]
     Active Substance: RITUXIMAB
     Route: 042
     Dates: start: 20140730
  11. RITUXAN [Suspect]
     Active Substance: RITUXIMAB
     Indication: RHEUMATOID ARTHRITIS
     Dosage: DATE TO MOST RECENT DOSE: 09/MAR/2015?LAST DOSE: 23/MAR/2015
     Route: 042
     Dates: start: 20140120
  12. RANITIDINE. [Concomitant]
     Active Substance: RANITIDINE
  13. VITAMIN C [Concomitant]
     Active Substance: ASCORBIC ACID
  14. COLACE [Concomitant]
     Active Substance: DOCUSATE SODIUM
  15. PSYLLIUM FIBER [Concomitant]
  16. NALTREXONE [Concomitant]
     Active Substance: NALTREXONE
  17. ZOFRAN [Concomitant]
     Active Substance: ONDANSETRON HYDROCHLORIDE
  18. TYLENOL [Suspect]
     Active Substance: ACETAMINOPHEN
     Indication: HEADACHE
     Route: 065
  19. ZOFRAN [Suspect]
     Active Substance: ONDANSETRON HYDROCHLORIDE
     Indication: NAUSEA
     Route: 042
     Dates: start: 20151009
  20. METHYLPREDNISOLONE. [Suspect]
     Active Substance: METHYLPREDNISOLONE
     Indication: PREMEDICATION
     Route: 042
     Dates: start: 20151009
  21. MELATONIN [Suspect]
     Active Substance: MELATONIN
     Indication: PRODUCT USED FOR UNKNOWN INDICATION
     Route: 065
  22. TRAMADOL. [Concomitant]
     Active Substance: TRAMADOL
  23. SENOKOT [Concomitant]
     Active Substance: SENNOSIDES

REACTIONS (6)
  - Pain [Unknown]
  - Magnesium deficiency [Unknown]
  - Sinusitis [Unknown]
  - Depression [Unknown]
  - Fatigue [Unknown]
  - Nasopharyngitis [Recovered/Resolved]

NARRATIVE: CASE EVENT DATE: 2016
